FAERS Safety Report 8586563-3 (Version None)
Quarter: 2012Q3

REPORT INFORMATION
  Report Type: 
  Country: None (occurrence: None)
  Receive Date: 20120810
  Receipt Date: 20120629
  Transmission Date: 20120928
  Serious: Yes (Hospitalization)
  Sender: FDA-Public Use
  Company Number: GB-009507513-1203GBR00050

PATIENT

DRUGS (6)
  1. ASPIRIN [Concomitant]
     Dosage: 75 MG, QD
  2. JANUVIA [Suspect]
     Dosage: 100 MG, QD
     Route: 048
  3. BISOPROLOL FUMARATE [Concomitant]
     Dosage: 1 DF, QD
  4. MK-9378 [Concomitant]
     Dosage: 1 DF, QD
  5. SIMVASTATIN [Concomitant]
     Dosage: UNK UNK, QD
     Route: 048
  6. RAMIPRIL [Concomitant]
     Dosage: 1 DF, QD

REACTIONS (2)
  - OESOPHAGEAL CARCINOMA [None]
  - GASTROINTESTINAL DISORDER [None]
